FAERS Safety Report 7163875-1 (Version None)
Quarter: 2010Q4

REPORT INFORMATION
  Report Type: 
  Country: None (occurrence: None)
  Receive Date: 20101215
  Receipt Date: 20100629
  Transmission Date: 20110411
  Serious: Yes (Other)
  Sender: FDA-Public Use
  Company Number: CA-PFIZER INC-2010059084

PATIENT
  Age: 41 Year
  Sex: Male

DRUGS (4)
  1. LYRICA [Suspect]
     Indication: SCIATICA
     Dosage: 100 MG, 3X/DAY
     Route: 048
     Dates: start: 20100407, end: 20100510
  2. LYRICA [Suspect]
     Indication: NEURALGIA
  3. OXYCONTIN [Concomitant]
     Indication: PAIN
     Dosage: 20 MG, 2X/DAY
     Route: 048
     Dates: start: 20100301
  4. PERCOCET [Concomitant]
     Indication: PAIN
     Dosage: 1-2 TABS EVERY 4 TO 6 HOURS

REACTIONS (3)
  - ABNORMAL SLEEP-RELATED EVENT [None]
  - OBSESSIVE THOUGHTS [None]
  - SOMNAMBULISM [None]
